FAERS Safety Report 9248684 (Version 3)
Quarter: 2013Q2

REPORT INFORMATION
  Report Type: Report from Study
  Country: DE (occurrence: DE)
  Receive Date: 20130423
  Receipt Date: 20130517
  Transmission Date: 20140414
  Serious: Yes (Hospitalization)
  Sender: FDA-Public Use
  Company Number: DE-ROCHE-1215547

PATIENT
  Age: 76 Year
  Sex: Male
  Weight: 92 kg

DRUGS (1)
  1. BEVACIZUMAB [Suspect]
     Indication: RENAL CELL CARCINOMA
     Dosage: LAST DOSE PRIOR TO SAE 10/APR/2013
     Route: 042
     Dates: start: 20120522, end: 20130410

REACTIONS (3)
  - Cardiac disorder [Recovering/Resolving]
  - Congestive cardiomyopathy [Recovering/Resolving]
  - Atrial fibrillation [Recovering/Resolving]
